FAERS Safety Report 9384314 (Version 2)
Quarter: 2013Q4

REPORT INFORMATION
  Report Type: Spontaneous
  Country: GB (occurrence: GB)
  Receive Date: 20130705
  Receipt Date: 20131106
  Transmission Date: 20140711
  Serious: Yes (Disabling)
  Sender: FDA-Public Use
  Company Number: PHFR2013GB003748

PATIENT
  Age: 73 Year
  Sex: Female
  Weight: 58.6 kg

DRUGS (6)
  1. TERBINAFINE [Suspect]
     Indication: ONYCHOMYCOSIS
  2. ATORVASTATIN [Concomitant]
     Dosage: 20 MG, UNK
  3. PARACETAMOL [Concomitant]
     Dosage: 500 MG, BID (OCCASIONALLY)
  4. PARACETAMOL [Concomitant]
     Dosage: OCCASIONALLY
  5. OMEPRAZOLE [Concomitant]
     Dosage: 20 MG, QD
  6. TERBINAFINE [Suspect]
     Indication: ONYCHOMYCOSIS
     Dosage: 250 MG, QD
     Route: 048
     Dates: start: 20130604, end: 20130614

REACTIONS (6)
  - Ataxia [Recovering/Resolving]
  - Dizziness [Recovered/Resolved]
  - Vomiting [Recovered/Resolved]
  - Balance disorder [Recovered/Resolved with Sequelae]
  - Nausea [Recovered/Resolved]
  - Weight decreased [Unknown]
